FAERS Safety Report 25010926 (Version 5)
Quarter: 2025Q3

REPORT INFORMATION
  Report Type: Spontaneous
  Country: CA (occurrence: CA)
  Receive Date: 20250225
  Receipt Date: 20250917
  Transmission Date: 20251020
  Serious: Yes (Other)
  Sender: PFIZER
  Company Number: CA-PFIZER INC-202500042306

PATIENT
  Age: 75 Year
  Sex: Male

DRUGS (1)
  1. VYNDAMAX [Suspect]
     Active Substance: TAFAMIDIS
     Indication: Cardiac amyloidosis
     Dosage: 61 MG, 1X/DAY
     Route: 048
     Dates: start: 20240206

REACTIONS (1)
  - Seizure [Recovering/Resolving]
